FAERS Safety Report 5345132-9 (Version None)
Quarter: 2007Q2

REPORT INFORMATION
  Report Type: 
  Country: None (occurrence: None)
  Receive Date: 20070601
  Receipt Date: 20070518
  Transmission Date: 20071010
  Serious: Yes (Hospitalization)
  Sender: FDA-Public Use
  Company Number: US-CVT-070111

PATIENT
  Age: 69 Year
  Sex: Male

DRUGS (14)
  1. RANEXA [Suspect]
     Indication: ANGINA PECTORIS
     Dosage: 500 MG, BID, ORAL
     Route: 048
     Dates: start: 20070504, end: 20070517
  2. COLCHICINE(COLCHICINE) [Suspect]
  3. PROBENECID [Suspect]
  4. ALLOPURINOL [Concomitant]
  5. ATENOLOL [Concomitant]
  6. PRAVACHOL [Concomitant]
  7. VITAMIN E /00110501/ (TOCOPHEROL) [Concomitant]
  8. LISINOPRIL/00894001/ (LISINOPRIL) [Concomitant]
  9. AMITRIPTYLINE/00002201/ (AMITRIPTYLINE) [Concomitant]
  10. FOLIC ACID [Concomitant]
  11. IMDUR [Concomitant]
  12. WARFARIN/00014801/ (WARFARIN) [Concomitant]
  13. NEURONTIN [Concomitant]
  14. NITROSTAT [Concomitant]

REACTIONS (5)
  - CARDIAC HYPERTROPHY [None]
  - COORDINATION ABNORMAL [None]
  - DRUG INTERACTION [None]
  - NEUROPATHY PERIPHERAL [None]
  - RENAL FAILURE ACUTE [None]
